FAERS Safety Report 10216584 (Version 1)
Quarter: 2014Q2

REPORT INFORMATION
  Report Type: Spontaneous
  Country: BR (occurrence: BR)
  Receive Date: 20140604
  Receipt Date: 20140604
  Transmission Date: 20141212
  Serious: Yes (Hospitalization)
  Sender: FDA-Public Use
  Company Number: BR-ASTRAZENECA-2014SE37125

PATIENT
  Sex: Female

DRUGS (10)
  1. BRILINTA [Suspect]
     Indication: INFARCTION
     Route: 048
     Dates: start: 201308
  2. SELOZOK [Suspect]
     Indication: INFARCTION
     Route: 048
     Dates: start: 201308
  3. ROSUCOR [Suspect]
     Indication: INFARCTION
     Dosage: DAILY
     Route: 048
     Dates: start: 201308
  4. ASA BUFFERED [Concomitant]
     Indication: INFARCTION
     Route: 048
     Dates: start: 201308
  5. SUSTRATE [Concomitant]
     Indication: INFARCTION
     Route: 048
     Dates: start: 201308
  6. ASSERT [Concomitant]
     Indication: INSOMNIA
     Dosage: AT NIGHT
     Route: 048
  7. FRISIUM [Concomitant]
     Indication: INSOMNIA
     Dosage: AT NIGHT
     Route: 048
  8. LOSARTAN [Concomitant]
     Route: 048
  9. RANITIDINE [Concomitant]
     Dosage: TWO TIMES A DAY
     Route: 048
  10. OMEGA 3 [Concomitant]
     Indication: ARTHRALGIA
     Dosage: DAILY
     Route: 048
     Dates: start: 2011

REACTIONS (1)
  - Fatigue [Recovered/Resolved]
